FAERS Safety Report 24697495 (Version 2)
Quarter: 2025Q1

REPORT INFORMATION
  Report Type: Report from Study
  Country: CA (occurrence: CA)
  Receive Date: 20241204
  Receipt Date: 20250127
  Transmission Date: 20250409
  Serious: Yes (Hospitalization, Other)
  Sender: OTSUKA
  Company Number: CA-OTSUKA-2021_035070

PATIENT
  Age: 38 Year
  Sex: Female

DRUGS (4)
  1. ARIPIPRAZOLE [Suspect]
     Active Substance: ARIPIPRAZOLE
     Indication: Product used for unknown indication
     Route: 030
  2. ARIPIPRAZOLE [Suspect]
     Active Substance: ARIPIPRAZOLE
     Route: 030
  3. ARIPIPRAZOLE [Suspect]
     Active Substance: ARIPIPRAZOLE
     Route: 030
  4. ABILIFY [Concomitant]
     Active Substance: ARIPIPRAZOLE
     Indication: Product used for unknown indication
     Route: 065

REACTIONS (7)
  - Migraine [Recovered/Resolved]
  - Kidney infection [Recovering/Resolving]
  - Somnolence [Not Recovered/Not Resolved]
  - Product dose omission issue [Recovered/Resolved]
  - Product distribution issue [Unknown]
  - Underdose [Unknown]
  - Product availability issue [Unknown]

NARRATIVE: CASE EVENT DATE: 20241108
